FAERS Safety Report 7831076-7 (Version None)
Quarter: 2011Q4

REPORT INFORMATION
  Report Type: 
  Country: None (occurrence: None)
  Receive Date: 20111021
  Receipt Date: 20111013
  Transmission Date: 20120403
  Serious: Yes (Other)
  Sender: FDA-Public Use
  Company Number: PHHY2011BR91903

PATIENT
  Sex: Female

DRUGS (1)
  1. DIOVAN [Suspect]
     Indication: HYPERTENSION
     Dosage: 160 MG, UNK

REACTIONS (5)
  - PAIN [None]
  - CHOLELITHIASIS [None]
  - BLOOD PRESSURE INCREASED [None]
  - SPINAL DISORDER [None]
  - NASOPHARYNGITIS [None]
